FAERS Safety Report 7626093-6 (Version None)
Quarter: 2011Q3

REPORT INFORMATION
  Report Type: 
  Country: None (occurrence: None)
  Receive Date: 20110713
  Receipt Date: 20110628
  Transmission Date: 20111222
  Serious: Yes (Hospitalization)
  Sender: FDA-Public Use
  Company Number: 2011MA008256

PATIENT
  Age: 52 Year
  Sex: Male

DRUGS (4)
  1. SULFATRIM PEDIATRIC [Suspect]
     Indication: FOLLICULITIS
     Dosage: 2 DOSES
  2. SUMATRIPTAN SUCCINATE [Concomitant]
  3. HYDROCODONE [Concomitant]
  4. IBUPROFEN [Concomitant]

REACTIONS (2)
  - BLOOD GLUCOSE INCREASED [None]
  - MENINGITIS ASEPTIC [None]
